FAERS Safety Report 10042109 (Version 2)
Quarter: 2014Q2

REPORT INFORMATION
  Report Type: Spontaneous
  Country: US (occurrence: US)
  Receive Date: 20140327
  Receipt Date: 20140630
  Transmission Date: 20141212
  Serious: Yes (Hospitalization)
  Sender: FDA-Public Use
  Company Number: US-BAYER-2014-045774

PATIENT
  Age: 25 Year
  Sex: Female
  Weight: 94.79 kg

DRUGS (5)
  1. YAZ [Suspect]
  2. Z-PAK [Concomitant]
     Dosage: 250 MG, UNK
  3. TORADOL [Concomitant]
  4. LORTAB [Concomitant]
  5. IBUPROFEN [Concomitant]

REACTIONS (1)
  - Deep vein thrombosis [None]
